FAERS Safety Report 11052864 (Version 1)
Quarter: 2015Q2

REPORT INFORMATION
  Report Type: Spontaneous
  Country: US (occurrence: None)
  Receive Date: 20150420
  Receipt Date: 20150420
  Transmission Date: 20150821
  Serious: Yes (Other)
  Sender: FDA-Public Use
  Company Number: None

PATIENT
  Age: 70 Year
  Sex: Male

DRUGS (1)
  1. GLIPIZIDE. [Suspect]
     Active Substance: GLIPIZIDE
     Indication: DIABETES MELLITUS
     Dosage: 20 MG, ONCE/DAY, PO
     Route: 048
     Dates: start: 201402

REACTIONS (2)
  - Headache [None]
  - Depressed level of consciousness [None]

NARRATIVE: CASE EVENT DATE: 20140215
